FAERS Safety Report 23289240 (Version 1)
Quarter: 2023Q4

REPORT INFORMATION
  Report Type: Spontaneous
  Country: US (occurrence: None)
  Receive Date: 20231211
  Receipt Date: 20231211
  Transmission Date: 20240110
  Serious: Yes (Disabling)
  Sender: FDA-Public Use
  Company Number: None

PATIENT
  Age: 42 Year
  Sex: Female
  Weight: 85.5 kg

DRUGS (3)
  1. WAKIX [Suspect]
     Active Substance: PITOLISANT HYDROCHLORIDE
     Indication: Narcolepsy
     Route: 048
  2. XYREM [Concomitant]
     Active Substance: SODIUM OXYBATE
  3. DULOXETINE [Concomitant]
     Active Substance: DULOXETINE

REACTIONS (6)
  - Abnormal behaviour [None]
  - Cataplexy [None]
  - Depression [None]
  - Bipolar disorder [None]
  - Mania [None]
  - Delusion [None]

NARRATIVE: CASE EVENT DATE: 20231206
